FAERS Safety Report 9357809 (Version 1)
Quarter: 2013Q2

REPORT INFORMATION
  Report Type: Spontaneous
  Country: DK (occurrence: CH)
  Receive Date: 20130620
  Receipt Date: 20130620
  Transmission Date: 20140414
  Serious: Yes (Other)
  Sender: FDA-Public Use
  Company Number: CH-FRI-1000046051

PATIENT
  Sex: Female

DRUGS (3)
  1. ESCITALOPRAM [Suspect]
     Indication: ANXIETY DISORDER
     Dosage: 10 MG
     Route: 048
     Dates: start: 2011
  2. ESCITALOPRAM [Suspect]
     Indication: DEPRESSION
  3. LEXOTANIL [Concomitant]
     Route: 048

REACTIONS (2)
  - Arthralgia [Not Recovered/Not Resolved]
  - Condition aggravated [Not Recovered/Not Resolved]
